FAERS Safety Report 24389168 (Version 2)
Quarter: 2024Q4

REPORT INFORMATION
  Report Type: Report from Study
  Country: ES (occurrence: ES)
  Receive Date: 20241002
  Receipt Date: 20241008
  Transmission Date: 20250114
  Serious: No
  Sender: ABBVIE
  Company Number: ES-RICHTER-2024-GR-010167

PATIENT
  Age: 30 Year
  Sex: Female

DRUGS (1)
  1. LEVONORGESTREL [Suspect]
     Active Substance: LEVONORGESTREL
     Indication: Contraception
     Dosage: TIME INTERVAL: AS NECESSARY: 52 MG, SINGLE AT AN INITIAL RELEASE RATE OF 20 MICROGRAMS PER 24 HOURS
     Route: 015
     Dates: start: 20210729, end: 202308

REACTIONS (1)
  - Device dislocation [Recovered/Resolved]
